FAERS Safety Report 17713063 (Version 1)
Quarter: 2020Q2

REPORT INFORMATION
  Report Type: Spontaneous
  Country: US (occurrence: US)
  Receive Date: 20200427
  Receipt Date: 20200427
  Transmission Date: 20200714
  Serious: No
  Sender: FDA-Public Use
  Company Number: US-AMGEN-USASP2020067146

PATIENT
  Sex: Female

DRUGS (12)
  1. TRIAMCINOLON [TRIAMCINOLONE] [Concomitant]
     Dosage: 0.1 PERCENT
  2. HYDROCODONE [Concomitant]
     Active Substance: HYDROCODONE
     Dosage: 7.5-325M
  3. ISOSORBID DINITRATE [Concomitant]
     Active Substance: ISOSORBIDE DINITRATE
     Dosage: 30 MILLIGRAM
  4. LISINOPRIL. [Concomitant]
     Active Substance: LISINOPRIL
     Dosage: 10 MILLIGRAM
  5. PROMETHAZINE [Concomitant]
     Active Substance: PROMETHAZINE HYDROCHLORIDE
     Dosage: 25 MILLIGRAM
  6. SIMVASTATIN. [Concomitant]
     Active Substance: SIMVASTATIN
     Dosage: 40 MILLIGRAM
  7. TOLTERODINE [Concomitant]
     Active Substance: TOLTERODINE
     Dosage: 4 MILLIGRAM
  8. TRIAMTERENE. [Concomitant]
     Active Substance: TRIAMTERENE
     Dosage: 37.5-25M
  9. AMOXICILLIN. [Concomitant]
     Active Substance: AMOXICILLIN
     Dosage: 500 MILLIGRAM
  10. PREDNISONE. [Concomitant]
     Active Substance: PREDNISONE
     Dosage: 20 MILLIGRAM
  11. REPATHA [Suspect]
     Active Substance: EVOLOCUMAB
     Indication: DERMATITIS ATOPIC
     Dosage: 140 MILLIGRAM, Q2WK
     Route: 058
  12. METOPROLOL. [Concomitant]
     Active Substance: METOPROLOL
     Dosage: 25 MILLIGRAM

REACTIONS (2)
  - Product dose omission [Recovered/Resolved]
  - Off label use [Unknown]
